FAERS Safety Report 19472553 (Version 1)
Quarter: 2021Q2

REPORT INFORMATION
  Report Type: Spontaneous
  Country: US (occurrence: US)
  Receive Date: 20210629
  Receipt Date: 20210629
  Transmission Date: 20210717
  Serious: No
  Sender: FDA-Public Use
  Company Number: US-PFIZER INC-2021372532

PATIENT
  Age: 61 Year
  Sex: Female

DRUGS (1)
  1. IBRANCE [Suspect]
     Active Substance: PALBOCICLIB
     Indication: BREAST CANCER FEMALE
     Dosage: 125 MG, CYCLIC (ON DAYS 1?21 EVERY 28 DAYS)
     Route: 048
     Dates: start: 202102

REACTIONS (3)
  - Nausea [Unknown]
  - Rash [Unknown]
  - Night sweats [Unknown]

NARRATIVE: CASE EVENT DATE: 2021
